FAERS Safety Report 4901126-6 (Version None)
Quarter: 2006Q1

REPORT INFORMATION
  Report Type: 
  Country: None (occurrence: None)
  Receive Date: 20060201
  Receipt Date: 20060119
  Transmission Date: 20060701
  Serious: Yes (Death)
  Sender: FDA-Public Use
  Company Number: 2006011723

PATIENT
  Age: 85 Year
  Sex: Male

DRUGS (3)
  1. FLUCONAZOLE [Suspect]
     Indication: FUNGAL INFECTION
     Dates: start: 20051201
  2. ALL OTHER THERAPEUTIC PRODUCTS (ALL OTHER THERAPEUTIC PRODUCTS) [Concomitant]
  3. CORTICOSTEROIDS [Concomitant]

REACTIONS (2)
  - HAEMORRHAGIC STROKE [None]
  - RUPTURED CEREBRAL ANEURYSM [None]
